FAERS Safety Report 22307599 (Version 1)
Quarter: 2023Q2

REPORT INFORMATION
  Report Type: Other
  Country: US (occurrence: None)
  Receive Date: 20230511
  Receipt Date: 20230511
  Transmission Date: 20230721
  Serious: Yes (Hospitalization)
  Sender: FDA-Public Use
  Company Number: US-ROCHE-3347390

PATIENT
  Age: 67 Year
  Sex: Male
  Weight: 98.972 kg

DRUGS (8)
  1. OCREVUS [Suspect]
     Active Substance: OCRELIZUMAB
     Indication: Primary progressive multiple sclerosis
     Dosage: DATE OF TREATMENT: 21/MAR/2022, 16/MAR/2023
     Route: 042
     Dates: start: 20190927
  2. GABAPENTIN [Concomitant]
     Active Substance: GABAPENTIN
  3. FLUOXETINE [Concomitant]
     Active Substance: FLUOXETINE HYDROCHLORIDE
  4. RITALIN [Concomitant]
     Active Substance: METHYLPHENIDATE HYDROCHLORIDE
  5. BACLOFEN [Concomitant]
     Active Substance: BACLOFEN
  6. VITAMIN D2 [Concomitant]
     Active Substance: ERGOCALCIFEROL
  7. FROVATRIPTAN [Concomitant]
     Active Substance: FROVATRIPTAN
  8. NURTEC ODT [Concomitant]
     Active Substance: RIMEGEPANT SULFATE

REACTIONS (3)
  - COVID-19 pneumonia [Recovered/Resolved]
  - Pollakiuria [Recovered/Resolved]
  - Loss of consciousness [Recovered/Resolved]

NARRATIVE: CASE EVENT DATE: 20230419
